FAERS Safety Report 21575872 (Version 1)
Quarter: 2022Q4

REPORT INFORMATION
  Report Type: Spontaneous
  Country: FR (occurrence: FR)
  Receive Date: 20221110
  Receipt Date: 20221110
  Transmission Date: 20230112
  Serious: Yes (Other)
  Sender: FDA-Public Use
  Company Number: None

PATIENT
  Age: 85 Year
  Sex: Female

DRUGS (1)
  1. METFORMIN [Suspect]
     Active Substance: METFORMIN HYDROCHLORIDE
     Indication: Diabetes mellitus
     Dosage: UNIT DOSE : 2 DOSAGE FORMS,
     Route: 065

REACTIONS (2)
  - Hypovitaminosis [Not Recovered/Not Resolved]
  - Anaemia folate deficiency [Not Recovered/Not Resolved]

NARRATIVE: CASE EVENT DATE: 20220824
